FAERS Safety Report 25341340 (Version 1)
Quarter: 2025Q2

REPORT INFORMATION
  Report Type: Spontaneous
  Country: CN (occurrence: CN)
  Receive Date: 20250521
  Receipt Date: 20250521
  Transmission Date: 20250716
  Serious: Yes (Other)
  Sender: SANOFI AVENTIS
  Company Number: CN-SA-2025SA143158

PATIENT
  Age: 71 Year
  Sex: Male
  Weight: 58 kg

DRUGS (2)
  1. OXALIPLATIN [Suspect]
     Active Substance: OXALIPLATIN
     Indication: Oesophageal carcinoma
     Route: 041
     Dates: start: 20250414, end: 20250414
  2. DEXTROSE [Concomitant]
     Active Substance: DEXTROSE MONOHYDRATE
     Indication: Oesophageal carcinoma
     Route: 041
     Dates: start: 20250414, end: 20250414

REACTIONS (3)
  - Drug-induced liver injury [Unknown]
  - Hepatic function abnormal [Unknown]
  - Myelosuppression [Recovering/Resolving]

NARRATIVE: CASE EVENT DATE: 20250101
